FAERS Safety Report 18927387 (Version 3)
Quarter: 2021Q1

REPORT INFORMATION
  Report Type: Report from Study
  Country: CA (occurrence: CA)
  Receive Date: 20210223
  Receipt Date: 20210330
  Transmission Date: 20210420
  Serious: Yes (Other)
  Sender: FDA-Public Use
  Company Number: CA-GLAXOSMITHKLINE-CA2021AMR049766

PATIENT
  Age: 73 Year
  Sex: Female

DRUGS (2)
  1. MEPOLIZUMAB [Suspect]
     Active Substance: MEPOLIZUMAB
     Indication: ASTHMA
     Dosage: 100 MG, Z, MONTHLY (EVERY 4 WEEKS)
     Route: 058
     Dates: start: 20160913
  2. MEPOLIZUMAB [Suspect]
     Active Substance: MEPOLIZUMAB
     Dosage: 100 MG, Z,EVERY 4 WEEKS
     Route: 058

REACTIONS (4)
  - Retinal detachment [Unknown]
  - Cataract operation [Unknown]
  - Toe operation [Unknown]
  - Macular hole [Unknown]

NARRATIVE: CASE EVENT DATE: 20210219
